FAERS Safety Report 8293382-4 (Version None)
Quarter: 2012Q2

REPORT INFORMATION
  Report Type: 
  Country: None (occurrence: None)
  Receive Date: 20120417
  Receipt Date: 20120126
  Transmission Date: 20120825
  Serious: No
  Sender: FDA-Public Use
  Company Number: US-ASTRAZENECA-2012SE05536

PATIENT
  Age: 70 Year
  Sex: Female
  Weight: 71.7 kg

DRUGS (3)
  1. TRICOR [Concomitant]
     Indication: BLOOD TRIGLYCERIDES ABNORMAL
  2. NEXIUM [Suspect]
     Route: 048
  3. CRESTOR [Suspect]
     Route: 048

REACTIONS (1)
  - NASOPHARYNGITIS [None]
